FAERS Safety Report 8284741-4 (Version None)
Quarter: 2012Q2

REPORT INFORMATION
  Report Type: 
  Country: None (occurrence: None)
  Receive Date: 20120413
  Receipt Date: 20111228
  Transmission Date: 20120825
  Serious: No
  Sender: FDA-Public Use
  Company Number: US-ASTRAZENECA-2011SE58003

PATIENT
  Age: 87 Year
  Sex: Female
  Weight: 62.1 kg

DRUGS (4)
  1. AMARYL [Concomitant]
  2. PRINIVIL [Concomitant]
  3. SYNTHROID [Concomitant]
  4. NEXIUM [Suspect]
     Route: 048
     Dates: start: 20010911

REACTIONS (2)
  - GASTRIC DISORDER [None]
  - HYPERTENSION [None]
